FAERS Safety Report 25344281 (Version 2)
Quarter: 2025Q2

REPORT INFORMATION
  Report Type: Report from Study
  Country: US (occurrence: US)
  Receive Date: 20250521
  Receipt Date: 20250620
  Transmission Date: 20250716
  Serious: Yes (Hospitalization, Other)
  Sender: ABBVIE
  Company Number: US-ABBVIE-6285223

PATIENT
  Age: 66 Year
  Sex: Female

DRUGS (1)
  1. MAVYRET [Suspect]
     Active Substance: GLECAPREVIR\PIBRENTASVIR
     Indication: Chronic hepatitis C
     Route: 048
     Dates: start: 20250331, end: 202504

REACTIONS (6)
  - Atrioventricular block complete [Not Recovered/Not Resolved]
  - Device related infection [Not Recovered/Not Resolved]
  - Heart rate decreased [Not Recovered/Not Resolved]
  - Cardiac dysfunction [Unknown]
  - Immune system disorder [Unknown]
  - Illness [Unknown]

NARRATIVE: CASE EVENT DATE: 20250101
